FAERS Safety Report 17970055 (Version 1)
Quarter: 2020Q3

REPORT INFORMATION
  Report Type: Report from Study
  Country: CA (occurrence: CA)
  Receive Date: 20200701
  Receipt Date: 20200701
  Transmission Date: 20201103
  Serious: Yes (Life-Threatening, Hospitalization)
  Sender: FDA-Public Use
  Company Number: CA-MYLANLABS-2020M1041396

PATIENT
  Age: 42 Year
  Sex: Male
  Weight: 108 kg

DRUGS (5)
  1. CLOZAPINE. [Suspect]
     Active Substance: CLOZAPINE
     Indication: PSYCHOTIC DISORDER
     Dosage: TITRATED FROM 12.5 MG UP TO 250 MG DAILY
     Dates: start: 20200303, end: 20200325
  2. ESCITALOPRAM [Concomitant]
     Active Substance: ESCITALOPRAM OXALATE
     Dosage: 20 MILLIGRAM, QAM
  3. PROPRANOLOL [Concomitant]
     Active Substance: PROPRANOLOL HYDROCHLORIDE
     Dosage: 20 MILLIGRAM, QAM
  4. CLOZAPINE. [Suspect]
     Active Substance: CLOZAPINE
     Indication: SCHIZOPHRENIA
  5. CLOZAPINE. [Suspect]
     Active Substance: CLOZAPINE
     Indication: DELUSIONAL DISORDER, UNSPECIFIED TYPE

REACTIONS (4)
  - Troponin increased [Recovering/Resolving]
  - Myocarditis [Unknown]
  - C-reactive protein increased [Recovering/Resolving]
  - Antipsychotic drug level increased [Unknown]

NARRATIVE: CASE EVENT DATE: 202003
